FAERS Safety Report 6222677-0 (Version None)
Quarter: 2009Q2

REPORT INFORMATION
  Report Type: 
  Country: None (occurrence: None)
  Receive Date: 20090609
  Receipt Date: 20090609
  Transmission Date: 20091009
  Serious: Yes (Other)
  Sender: FDA-Public Use
  Company Number: None

PATIENT
  Age: 51 Year
  Sex: Female
  Weight: 71.6683 kg

DRUGS (6)
  1. DOXYCYCLINE HYCLATE [Suspect]
     Indication: HAEMORRHAGE
     Dosage: 100 MG 2 DAILY PO
     Route: 048
     Dates: start: 20090601, end: 20090608
  2. SYNTHROID [Concomitant]
  3. FLONASE [Concomitant]
  4. CETIRIZINE HYDROCHLORIDE [Concomitant]
  5. PILOCARPINE HYDROCHLORIDE [Concomitant]
  6. IBUPROFEN [Concomitant]

REACTIONS (5)
  - BURNING SENSATION [None]
  - FEELING ABNORMAL [None]
  - PARAESTHESIA [None]
  - PHOTOSENSITIVITY REACTION [None]
  - SKIN DISORDER [None]
